APPROVED DRUG PRODUCT: DICYCLOMINE HYDROCHLORIDE
Active Ingredient: DICYCLOMINE HYDROCHLORIDE
Strength: 10MG
Dosage Form/Route: CAPSULE;ORAL
Application: A217054 | Product #001 | TE Code: AB
Applicant: TWI PHARMACEUTICALS INC
Approved: Dec 27, 2022 | RLD: No | RS: No | Type: RX